FAERS Safety Report 8177860-4 (Version None)
Quarter: 2012Q1

REPORT INFORMATION
  Report Type: 
  Country: None (occurrence: None)
  Receive Date: 20120301
  Receipt Date: 20120223
  Transmission Date: 20120608
  Serious: Yes (Other)
  Sender: FDA-Public Use
  Company Number: US-ABBOTT-12P-163-0908570-00

PATIENT
  Age: 32 Year
  Sex: Female

DRUGS (4)
  1. HUMIRA [Suspect]
     Dosage: EASE OFF TO 40MG EVERY OTHER WEEK
     Route: 058
  2. HUMIRA [Suspect]
     Indication: CROHN'S DISEASE
     Route: 058
  3. HUMIRA [Suspect]
     Dosage: INCREASED DOSE TO 40MG WEEKLY
     Route: 058
  4. HUMIRA [Suspect]
     Route: 058

REACTIONS (5)
  - PREMATURE DELIVERY [None]
  - CROHN'S DISEASE [None]
  - DIARRHOEA [None]
  - ABDOMINAL PAIN [None]
  - DRUG INEFFECTIVE [None]
